FAERS Safety Report 19643567 (Version 3)
Quarter: 2021Q3

REPORT INFORMATION
  Report Type: Spontaneous
  Country: BR (occurrence: BR)
  Receive Date: 20210730
  Receipt Date: 20210908
  Transmission Date: 20211014
  Serious: Yes (Other)
  Sender: FDA-Public Use
  Company Number: BR-009507513-2107BRA007306

PATIENT
  Age: 82 Year
  Sex: Male
  Weight: 98 kg

DRUGS (2)
  1. JANUMET [Suspect]
     Active Substance: METFORMIN HYDROCHLORIDE\SITAGLIPTIN PHOSPHATE
     Dosage: ONE TABLET AFTER BREAKFAST AND ONE TABLET AFTER DINNER
     Route: 048
     Dates: start: 2021
  2. JANUMET [Suspect]
     Active Substance: METFORMIN HYDROCHLORIDE\SITAGLIPTIN PHOSPHATE
     Indication: DIABETES MELLITUS
     Dosage: 50/850 MG, ONE TABLET AFTER BREAKFAST AND ONE TABLET AFTER DINNER
     Route: 048
     Dates: start: 202106

REACTIONS (7)
  - Chronic obstructive pulmonary disease [Unknown]
  - Drug ineffective [Unknown]
  - Product physical issue [Unknown]
  - Suspected counterfeit product [Unknown]
  - Hypothyroidism [Unknown]
  - Blood glucose increased [Recovered/Resolved]
  - Packaging design issue [Unknown]

NARRATIVE: CASE EVENT DATE: 202106
